FAERS Safety Report 9046654 (Version 1)
Quarter: 2013Q1

REPORT INFORMATION
  Report Type: Spontaneous
  Country: US (occurrence: US)
  Receive Date: 20130204
  Receipt Date: 20130204
  Transmission Date: 20140127
  Serious: No
  Sender: FDA-Public Use
  Company Number: US-BIOGENIDEC-2013BI007843

PATIENT
  Sex: Female

DRUGS (1)
  1. TYSABRI [Suspect]
     Indication: MULTIPLE SCLEROSIS
     Route: 042
     Dates: start: 20110606

REACTIONS (5)
  - Tooth disorder [Unknown]
  - Nail growth abnormal [Not Recovered/Not Resolved]
  - Urine odour abnormal [Unknown]
  - Vaginal discharge [Unknown]
  - Dental caries [Not Recovered/Not Resolved]
